FAERS Safety Report 6232430-X (Version None)
Quarter: 2009Q2

REPORT INFORMATION
  Report Type: 
  Country: None (occurrence: None)
  Receive Date: 20090617
  Receipt Date: 20090608
  Transmission Date: 20091009
  Serious: Yes (Other)
  Sender: FDA-Public Use
  Company Number: US-JNJFOC-20090400024

PATIENT
  Sex: Female
  Weight: 52.16 kg

DRUGS (8)
  1. TOPAMAX [Suspect]
     Route: 048
  2. TOPAMAX [Suspect]
     Indication: MIGRAINE
     Dosage: QHS - ONE AT BED TIME
     Route: 048
  3. ADDERALL 10 [Concomitant]
     Indication: ATTENTION DEFICIT/HYPERACTIVITY DISORDER
     Dosage: 15 MG IN AM AND 10 MG NOON
     Route: 065
  4. ZOLOFT [Concomitant]
     Indication: BIPOLAR DISORDER
     Route: 065
  5. CLONIDINE [Concomitant]
     Indication: ATTENTION DEFICIT/HYPERACTIVITY DISORDER
     Dosage: HALF AT 3 PM AND 1/2 AT HOUR OF SLEEP
     Route: 065
  6. NASONEX [Concomitant]
     Indication: SINUS DISORDER
     Route: 065
  7. CLARITIN [Concomitant]
     Indication: MULTIPLE ALLERGIES
     Route: 065
  8. ABILIFY [Concomitant]

REACTIONS (4)
  - ATTENTION DEFICIT/HYPERACTIVITY DISORDER [None]
  - EMOTIONAL DISORDER [None]
  - TIC [None]
  - WEIGHT DECREASED [None]
